FAERS Safety Report 25150173 (Version 1)
Quarter: 2025Q2

REPORT INFORMATION
  Report Type: Spontaneous
  Country: US (occurrence: US)
  Receive Date: 20250402
  Receipt Date: 20250402
  Transmission Date: 20250717
  Serious: No
  Sender: VANDA PHARMACEUTICALS
  Company Number: US-VANDA PHARMACEUTICALS, INC-2024PONUS001126

PATIENT
  Sex: Female

DRUGS (1)
  1. PONVORY [Suspect]
     Active Substance: PONESIMOD
     Indication: Multiple sclerosis
     Dosage: 20 MILLIGRAM, QD
     Route: 048

REACTIONS (8)
  - Bradyphrenia [Unknown]
  - Headache [Unknown]
  - Multiple sclerosis [Unknown]
  - Decreased activity [Unknown]
  - Dysstasia [Unknown]
  - Fatigue [Unknown]
  - Memory impairment [Unknown]
  - Product use issue [Unknown]
